FAERS Safety Report 24290927 (Version 2)
Quarter: 2024Q4

REPORT INFORMATION
  Report Type: Spontaneous
  Country: JP (occurrence: JP)
  Receive Date: 20240906
  Receipt Date: 20241007
  Transmission Date: 20250114
  Serious: No
  Sender: MERCK
  Company Number: JP-MSD-M2024-34879

PATIENT
  Age: 65 Year
  Sex: Male

DRUGS (2)
  1. LAGEVRIO [Suspect]
     Active Substance: MOLNUPIRAVIR
     Indication: COVID-19 treatment
     Dosage: 800 MILLIGRAM, BID
     Route: 048
     Dates: start: 20240829, end: 20240829
  2. LAGEVRIO [Suspect]
     Active Substance: MOLNUPIRAVIR
     Dosage: 800 MILLIGRAM, BID
     Route: 048
     Dates: start: 20240831, end: 20240902

REACTIONS (2)
  - Product dose omission in error [Unknown]
  - Product use issue [Unknown]

NARRATIVE: CASE EVENT DATE: 20240830
